FAERS Safety Report 15255315 (Version 1)
Quarter: 2018Q3

REPORT INFORMATION
  Report Type: Spontaneous
  Country: US (occurrence: US)
  Receive Date: 20180808
  Receipt Date: 20180808
  Transmission Date: 20181010
  Serious: No
  Sender: FDA-Public Use
  Company Number: US-PFIZER INC-2018314499

PATIENT
  Sex: Female

DRUGS (1)
  1. LYRICA [Suspect]
     Active Substance: PREGABALIN
     Dosage: 300 MG, UNK

REACTIONS (9)
  - Hyperhidrosis [Unknown]
  - Dizziness [Recovering/Resolving]
  - Swelling [Unknown]
  - Balance disorder [Unknown]
  - Weight decreased [Unknown]
  - Oedema peripheral [Recovering/Resolving]
  - Muscle spasms [Unknown]
  - Pollakiuria [Unknown]
  - Muscle twitching [Unknown]
